FAERS Safety Report 4835566-0 (Version None)
Quarter: 2005Q4

REPORT INFORMATION
  Report Type: 
  Country: None (occurrence: None)
  Receive Date: 20051123
  Receipt Date: 20051118
  Transmission Date: 20060501
  Serious: Yes (Death, Hospitalization)
  Sender: FDA-Public Use
  Company Number: SE-BOEHRINGER INGELHEIM PHARMACEUTICALS, INC.-2005-SW-00532SW

PATIENT
  Sex: Male

DRUGS (2)
  1. PERSANTIN [Suspect]
  2. TROMBYL [Suspect]

REACTIONS (7)
  - CEREBROVASCULAR ACCIDENT [None]
  - CEREBROVASCULAR DISORDER [None]
  - DEATH [None]
  - DEPRESSED LEVEL OF CONSCIOUSNESS [None]
  - GASTRIC CANCER [None]
  - HAEMATEMESIS [None]
  - METASTASES TO LIVER [None]
